FAERS Safety Report 4997108-9 (Version None)
Quarter: 2006Q2

REPORT INFORMATION
  Report Type: 
  Country: None (occurrence: None)
  Receive Date: 20060508
  Receipt Date: 20060508
  Transmission Date: 20061013
  Serious: No
  Sender: FDA-Public Use
  Company Number: None

PATIENT
  Age: 76 Year
  Sex: Male

DRUGS (5)
  1. ADVAIR DISKUS 250/50 [Suspect]
     Indication: ASTHMA
     Dosage: USE 1 PUFF TWICE DAILY
     Dates: start: 20060301
  2. NEXIUM [Concomitant]
  3. SINGULAIR [Concomitant]
  4. TRICOR [Concomitant]
  5. FLONASE [Concomitant]

REACTIONS (4)
  - DEVICE FAILURE [None]
  - DYSPNOEA [None]
  - INCORRECT DOSE ADMINISTERED [None]
  - PHARMACEUTICAL PRODUCT COMPLAINT [None]
